FAERS Safety Report 4302238-0 (Version None)
Quarter: 2004Q1

REPORT INFORMATION
  Report Type: 
  Country: None (occurrence: None)
  Receive Date: 20040217
  Receipt Date: 20031216
  Transmission Date: 20041129
  Serious: No
  Sender: FDA-Public Use
  Company Number: PHEH2003US11489

PATIENT
  Age: 65 Year
  Sex: Male

DRUGS (6)
  1. GLEEVEC [Suspect]
     Indication: CHRONIC MYELOID LEUKAEMIA
     Dosage: 400 MG, QD, ORAL
     Route: 048
     Dates: start: 20031101
  2. LISINOPRIL [Concomitant]
  3. LOPRESSOR [Concomitant]
  4. ACETYLSALICYLIC ACID [Concomitant]
  5. TRAZODONE HCL [Concomitant]
  6. INDOMETHACIN [Concomitant]

REACTIONS (1)
  - DRUG SCREEN POSITIVE [None]
